FAERS Safety Report 7279010-5 (Version None)
Quarter: 2011Q1

REPORT INFORMATION
  Report Type: 
  Country: None (occurrence: None)
  Receive Date: 20110207
  Receipt Date: 20110126
  Transmission Date: 20110831
  Serious: Yes (Hospitalization)
  Sender: FDA-Public Use
  Company Number: PHHO2010US12110

PATIENT
  Sex: Male
  Weight: 123.36 kg

DRUGS (29)
  1. COUMADIN [Concomitant]
  2. VITAMIN D [Concomitant]
  3. SPIRONOLACTONE [Concomitant]
  4. ENALAPRIL MALEATE [Suspect]
     Dosage: CODE NOT BROKEN
     Route: 048
     Dates: start: 20100518, end: 20100723
  5. BLINDED NO TREATMENT RECEIVED [Suspect]
     Dosage: CODE NOT BROKEN
     Route: 048
     Dates: start: 20100729
  6. COMPARATOR ENALAPRIL [Suspect]
     Indication: CARDIAC FAILURE
  7. CRESTOR [Concomitant]
  8. SODIUM CHLORIDE [Concomitant]
  9. LASIX [Concomitant]
  10. BLINDED NO TREATMENT RECEIVED [Suspect]
     Dosage: NO TREATMENT
     Dates: start: 20100724, end: 20100728
  11. TORSEMIDE [Concomitant]
  12. FISH OIL [Concomitant]
  13. XYLOCAINE [Concomitant]
  14. ASPIRIN [Concomitant]
  15. ENALAPRIL MALEATE [Suspect]
     Dosage: NO TREATMENT
     Dates: start: 20100724, end: 20100728
  16. ENALAPRIL MALEATE [Suspect]
     Dosage: CODE NOT BROKEN
     Route: 048
     Dates: start: 20100729
  17. KLOR-CON [Concomitant]
  18. WARFARIN SODIUM [Concomitant]
  19. CAPTOPRIL [Concomitant]
  20. ALISKIREN [Suspect]
     Indication: CARDIAC FAILURE
  21. AMIODARONE [Concomitant]
  22. CARVEDILOL [Concomitant]
  23. BLINDED ALISKIREN [Suspect]
     Dosage: CODE NOT BROKEN
     Route: 048
     Dates: start: 20100518, end: 20100723
  24. BLINDED NO TREATMENT RECEIVED [Suspect]
     Dosage: CODE NOT BROKEN
     Route: 048
     Dates: start: 20100518, end: 20100723
  25. NIASPAN [Concomitant]
  26. HEPARIN [Concomitant]
  27. BLINDED ALISKIREN [Suspect]
     Dosage: NO TREATMENT
     Dates: start: 20100724, end: 20100728
  28. BLINDED ALISKIREN [Suspect]
     Dosage: CODE NOT BROKEN
     Route: 048
     Dates: start: 20100729
  29. MUCOMYST [Concomitant]

REACTIONS (9)
  - ATRIAL FLUTTER [None]
  - CARDIAC FAILURE [None]
  - CHEST PAIN [None]
  - DISEASE PROGRESSION [None]
  - ATRIAL FIBRILLATION [None]
  - DYSPNOEA [None]
  - CONCOMITANT DISEASE PROGRESSION [None]
  - CORONARY ARTERY DISEASE [None]
  - CATHETERISATION CARDIAC [None]
